FAERS Safety Report 5571185-9 (Version None)
Quarter: 2007Q4

REPORT INFORMATION
  Report Type: 
  Country: None (occurrence: None)
  Receive Date: 20071221
  Receipt Date: 20070104
  Transmission Date: 20080405
  Serious: No
  Sender: FDA-Public Use
  Company Number: A0634120A

PATIENT
  Age: 59 Year
  Sex: Female

DRUGS (5)
  1. FLONASE [Suspect]
     Dosage: 2SPR PER DAY
     Route: 045
  2. LEXAPRO [Concomitant]
  3. CRESTOR [Concomitant]
  4. ZANTAC [Concomitant]
  5. AMITRIPTLINE HCL [Concomitant]

REACTIONS (2)
  - PAIN [None]
  - SINUS DISORDER [None]
